FAERS Safety Report 6162547-X (Version None)
Quarter: 2009Q2

REPORT INFORMATION
  Report Type: 
  Country: None (occurrence: None)
  Receive Date: 20090417
  Receipt Date: 20090403
  Transmission Date: 20091009
  Serious: Yes (Other)
  Sender: FDA-Public Use
  Company Number: 310002M09ITA

PATIENT
  Age: 42 Year
  Sex: Female

DRUGS (9)
  1. GONAL-F [Suspect]
     Indication: ANOVULATORY CYCLE
     Dosage: SEE IMAGE
     Dates: start: 20010201, end: 20010201
  2. GONAL-F [Suspect]
     Indication: ANOVULATORY CYCLE
     Dosage: SEE IMAGE
     Dates: start: 20010301, end: 20010501
  3. GONAL-F [Suspect]
     Indication: ANOVULATORY CYCLE
     Dosage: SEE IMAGE
     Dates: start: 20010501, end: 20010501
  4. GONAL-F [Suspect]
     Indication: ANOVULATORY CYCLE
     Dosage: SEE IMAGE
     Dates: start: 20010701, end: 20010701
  5. GONAL-F [Suspect]
     Indication: ANOVULATORY CYCLE
     Dosage: SEE IMAGE
     Dates: start: 20020101, end: 20020101
  6. GONAL-F [Suspect]
     Indication: ANOVULATORY CYCLE
     Dosage: SEE IMAGE
     Dates: start: 20020201, end: 20020201
  7. GONAL-F [Suspect]
     Indication: ANOVULATORY CYCLE
     Dosage: SEE IMAGE
     Dates: start: 20020701, end: 20020701
  8. GONAL-F [Suspect]
     Indication: ANOVULATORY CYCLE
     Dosage: SEE IMAGE
     Dates: start: 20021101, end: 20021101
  9. GONAL-F [Suspect]
     Indication: ANOVULATORY CYCLE
     Dosage: SEE IMAGE
     Dates: start: 20021201, end: 20021201

REACTIONS (2)
  - ENDOMETRIAL HYPERPLASIA [None]
  - ENDOMETRIAL METAPLASIA [None]
